FAERS Safety Report 4868296-X (Version None)
Quarter: 2005Q4

REPORT INFORMATION
  Report Type: 
  Country: None (occurrence: None)
  Receive Date: 20051223
  Receipt Date: 20051219
  Transmission Date: 20060501
  Serious: Yes (Other)
  Sender: FDA-Public Use
  Company Number: 2005US001831

PATIENT
  Age: 68 Year
  Sex: Male
  Weight: 90.5 kg

DRUGS (1)
  1. PROTOPIC [Suspect]
     Indication: DERMATITIS ATOPIC
     Dosage: TOPICAL
     Route: 061
     Dates: start: 20050608

REACTIONS (22)
  - ABDOMINAL PAIN UPPER [None]
  - ANAEMIA [None]
  - ANOREXIA [None]
  - ASCITES [None]
  - ASTHENIA [None]
  - BILE DUCT CANCER [None]
  - BLOOD IRON DECREASED [None]
  - CONCOMITANT DISEASE AGGRAVATED [None]
  - DIZZINESS [None]
  - EARLY SATIETY [None]
  - ENTEROCOCCAL BACTERAEMIA [None]
  - FAILURE TO THRIVE [None]
  - FALL [None]
  - HYPOTENSION [None]
  - HYPOVOLAEMIA [None]
  - JAUNDICE [None]
  - MALNUTRITION [None]
  - METASTASES TO LIVER [None]
  - METASTASES TO PERITONEUM [None]
  - OEDEMA [None]
  - SEPSIS [None]
  - WEIGHT DECREASED [None]
